FAERS Safety Report 6768081-8 (Version None)
Quarter: 2010Q2

REPORT INFORMATION
  Report Type: 
  Country: None (occurrence: None)
  Receive Date: 20100614
  Receipt Date: 20100602
  Transmission Date: 20101027
  Serious: Yes (Death)
  Sender: FDA-Public Use
  Company Number: LB-SANOFI-AVENTIS-2010SA031804

PATIENT
  Age: 72 Year
  Sex: Female

DRUGS (2)
  1. ELOXATIN [Suspect]
     Indication: COLORECTAL CANCER
     Route: 041
     Dates: start: 20100317, end: 20100317
  2. XELODA [Suspect]
     Indication: COLORECTAL CANCER
     Route: 048
     Dates: start: 20100317, end: 20100317

REACTIONS (1)
  - ACUTE RESPIRATORY DISTRESS SYNDROME [None]
